FAERS Safety Report 4558101-3 (Version None)
Quarter: 2005Q1

REPORT INFORMATION
  Report Type: 
  Country: None (occurrence: None)
  Receive Date: 20050121
  Receipt Date: 20041102
  Transmission Date: 20050727
  Serious: Yes (Hospitalization)
  Sender: FDA-Public Use
  Company Number: US-BRISTOL-MYERS SQUIBB COMPANY-12752358

PATIENT
  Age: 26 Year
  Sex: Female
  Weight: 82 kg

DRUGS (4)
  1. SERZONE [Suspect]
     Indication: DEPRESSION
     Dosage: 450MG BID DEC-01 TO 28-FEB-02 AND 250MG BID MAR-02 TO CONTINUING
     Route: 048
     Dates: start: 20011201
  2. GABITRIL [Suspect]
     Indication: MOOD SWINGS
     Dosage: 2MG QD AUG-01, NOT CONTINUING AND 20MG QD UNKNOWN TO 28-FEB-02
     Route: 048
     Dates: start: 20010801, end: 20020228
  3. RANITIDINE [Concomitant]
  4. ZYRTEC [Concomitant]

REACTIONS (3)
  - FEELING ABNORMAL [None]
  - MUSCLE TWITCHING [None]
  - STATUS EPILEPTICUS [None]
